FAERS Safety Report 13761575 (Version 1)
Quarter: 2017Q3

REPORT INFORMATION
  Report Type: Spontaneous
  Country: GB (occurrence: GB)
  Receive Date: 20170717
  Receipt Date: 20170717
  Transmission Date: 20171127
  Serious: Yes (Other)
  Sender: FDA-Public Use
  Company Number: GB-ASTRAZENECA-2017SE72488

PATIENT
  Age: 73 Year
  Sex: Male

DRUGS (5)
  1. OMEPRAZOLE. [Suspect]
     Active Substance: OMEPRAZOLE
     Route: 048
  2. GLUCOSAMINE [Concomitant]
     Active Substance: GLUCOSAMINE
     Route: 065
  3. GINKGO BILOBA [Concomitant]
     Active Substance: GINKGO
     Route: 065
  4. GINSENG [Concomitant]
     Active Substance: ASIAN GINSENG
  5. TAMSULOSIN HYDROCHLORIDE. [Suspect]
     Active Substance: TAMSULOSIN HYDROCHLORIDE
     Indication: PAIN
     Dosage: UNK
     Route: 065
     Dates: start: 20150909

REACTIONS (5)
  - Macular hole [Unknown]
  - Vision blurred [Unknown]
  - Macular detachment [Unknown]
  - Macular degeneration [Unknown]
  - Eosinophilia [Unknown]

NARRATIVE: CASE EVENT DATE: 20151014
